FAERS Safety Report 9671337 (Version 1)
Quarter: 2013Q4

REPORT INFORMATION
  Report Type: Spontaneous
  Country: US (occurrence: US)
  Receive Date: 20131106
  Receipt Date: 20131106
  Transmission Date: 20140711
  Serious: Yes (Other)
  Sender: FDA-Public Use
  Company Number: US-BAYER-2013-133256

PATIENT
  Age: 37 Year
  Sex: Female

DRUGS (2)
  1. MIRENA [Suspect]
     Indication: CONTRACEPTION
     Dosage: 20 MCG/24HR, CONT
     Route: 015
     Dates: start: 20130910, end: 20131028
  2. MIRENA [Suspect]
     Indication: MENORRHAGIA

REACTIONS (2)
  - Device dislocation [Recovered/Resolved]
  - Menorrhagia [Unknown]
